FAERS Safety Report 9377567 (Version 1)
Quarter: 2013Q3

REPORT INFORMATION
  Report Type: Spontaneous
  Country: US (occurrence: US)
  Receive Date: 20130701
  Receipt Date: 20130701
  Transmission Date: 20140515
  Serious: Yes (Other)
  Sender: FDA-Public Use
  Company Number: US-BAYER-2013-077719

PATIENT
  Age: 92 Year
  Sex: Female
  Weight: 81.63 kg

DRUGS (2)
  1. PHILLIPS^ MILK OF MAGNESIA [Suspect]
     Indication: CONSTIPATION
     Route: 048
  2. PHILLIPS LITTLE PHILLIPS FRESH STRAWBERRY [Suspect]
     Indication: CONSTIPATION
     Dosage: 4 TBSP
     Route: 048

REACTIONS (3)
  - Drug dependence [Not Recovered/Not Resolved]
  - Drug ineffective [None]
  - Incorrect dose administered [None]
